FAERS Safety Report 4444068-5 (Version None)
Quarter: 2004Q3

REPORT INFORMATION
  Report Type: 
  Country: None (occurrence: None)
  Receive Date: 20040729
  Receipt Date: 20040309
  Transmission Date: 20050211
  Serious: Yes (Hospitalization)
  Sender: FDA-Public Use
  Company Number: US-JNJFOC-20031203234

PATIENT
  Age: 66 Year
  Sex: Female

DRUGS (3)
  1. RISPERDAL [Suspect]
     Indication: SCHIZOPHRENIA
     Dosage: 3 MG 2 IN 1 DAY ORAL
     Route: 048
     Dates: start: 20031124
  2. LAMICTAL [Concomitant]
  3. CELEXA [Concomitant]

REACTIONS (2)
  - APHASIA [None]
  - MUSCLE TWITCHING [None]
